FAERS Safety Report 11029573 (Version 1)
Quarter: 2015Q2

REPORT INFORMATION
  Report Type: Spontaneous
  Country: US (occurrence: None)
  Receive Date: 20150413
  Receipt Date: 20150413
  Transmission Date: 20150821
  Serious: No
  Sender: FDA-Public Use
  Company Number: None

PATIENT
  Age: 38 Year
  Sex: Female
  Weight: 63.5 kg

DRUGS (6)
  1. RAMIPRIL. [Concomitant]
     Active Substance: RAMIPRIL
  2. CRESTOR [Concomitant]
     Active Substance: ROSUVASTATIN CALCIUM
  3. MINASTRIN 24 FE [Suspect]
     Active Substance: ETHINYL ESTRADIOL\NORETHINDRONE ACETATE
     Indication: CONTRACEPTION
     Dosage: 1 PILL TAKEN BY MOUTH
     Route: 048
     Dates: start: 20150405, end: 20150411
  4. HOLI BASIL [Concomitant]
  5. MINESTRONE [Concomitant]
  6. COQ10 [Concomitant]
     Active Substance: UBIDECARENONE

REACTIONS (2)
  - Dyspepsia [None]
  - Reaction to drug excipients [None]

NARRATIVE: CASE EVENT DATE: 20150405
